FAERS Safety Report 9847253 (Version 1)
Quarter: 2014Q1

REPORT INFORMATION
  Report Type: Spontaneous
  Country: US (occurrence: US)
  Receive Date: 20140127
  Receipt Date: 20140127
  Transmission Date: 20141002
  Serious: Yes (Hospitalization)
  Sender: FDA-Public Use
  Company Number: US-DYAX CORP.-2013DX000027

PATIENT
  Age: 39 Year
  Sex: Male
  Weight: 73.55 kg

DRUGS (6)
  1. KALBITOR [Suspect]
     Indication: HEREDITARY ANGIOEDEMA
     Route: 058
     Dates: start: 20130106, end: 20130106
  2. TRANEXAMIC ACID [Concomitant]
     Indication: HEREDITARY ANGIOEDEMA
     Route: 048
     Dates: start: 20130109
  3. SIMVASTATIN [Concomitant]
     Indication: BLOOD CHOLESTEROL ABNORMAL
     Route: 048
  4. BUSPIRONE [Concomitant]
     Indication: ANXIETY
     Route: 048
     Dates: start: 2012
  5. PRILOSEC [Concomitant]
     Indication: GASTROOESOPHAGEAL REFLUX DISEASE
     Route: 048
     Dates: start: 2011
  6. ASPIRIN [Concomitant]
     Indication: PRODUCT USED FOR UNKNOWN INDICATION
     Route: 048

REACTIONS (1)
  - Therapeutic response decreased [Recovered/Resolved]
